FAERS Safety Report 10186798 (Version 3)
Quarter: 2014Q3

REPORT INFORMATION
  Report Type: Report from Study
  Country: GB (occurrence: GB)
  Receive Date: 20140521
  Receipt Date: 20140828
  Transmission Date: 20150326
  Serious: Yes (Hospitalization, Other)
  Sender: FDA-Public Use
  Company Number: GB-US-EMD SERONO, INC.-7292499

PATIENT
  Age: 46 Year
  Sex: Female

DRUGS (6)
  1. REBIF [Suspect]
     Active Substance: INTERFERON BETA-1A
     Indication: PRODUCT USED FOR UNKNOWN INDICATION
     Route: 058
     Dates: start: 200909, end: 201405
  2. AMANTADINE [Suspect]
     Active Substance: AMANTADINE
     Indication: EPILEPSY
  3. REBIF [Suspect]
     Active Substance: INTERFERON BETA-1A
     Route: 058
     Dates: start: 201406
  4. CLONAZEPAM. [Concomitant]
     Active Substance: CLONAZEPAM
     Indication: PRODUCT USED FOR UNKNOWN INDICATION
     Dosage: 5 (UNSPECIFIED UNIT)
     Route: 048
     Dates: start: 201312
  5. AMANTADINE [Suspect]
     Active Substance: AMANTADINE
     Indication: PARKINSON^S DISEASE
     Dosage: 100 (UNSPECIFIED UNIT)
     Dates: start: 201404, end: 201405
  6. PROGESTERONE. [Concomitant]
     Active Substance: PROGESTERONE
     Indication: PRODUCT USED FOR UNKNOWN INDICATION

REACTIONS (6)
  - Parkinson^s disease [Unknown]
  - Drug dose omission [Recovered/Resolved]
  - Diplegia [Recovered/Resolved]
  - Malaise [Unknown]
  - Epilepsy [Unknown]
  - Disease progression [Unknown]

NARRATIVE: CASE EVENT DATE: 201405
